FAERS Safety Report 5631944-0 (Version None)
Quarter: 2008Q1

REPORT INFORMATION
  Report Type: 
  Country: None (occurrence: None)
  Receive Date: 20080220
  Receipt Date: 20080211
  Transmission Date: 20080703
  Serious: Yes (Death)
  Sender: FDA-Public Use
  Company Number: NZ-AVENTIS-200811453GDDC

PATIENT
  Age: 70 Year
  Sex: Male

DRUGS (3)
  1. FLUOROURACIL [Suspect]
     Dosage: DOSE: 725 MG IV BOLUS FOLLOWED BY 4400MG VIA IV INFUSION OVER 46 HOURS
     Route: 042
  2. IRINOTECAN [Concomitant]
     Dosage: DOSE: 330 MG OVER 2 HOURS
     Route: 042
  3. FOLINIC ACID [Concomitant]
     Dosage: DOSE: 725 MG OVER 2 HOURS
     Route: 042

REACTIONS (2)
  - MYOCARDIAL INFARCTION [None]
  - VENTRICULAR FIBRILLATION [None]
